FAERS Safety Report 5481153-3 (Version None)
Quarter: 2007Q4

REPORT INFORMATION
  Report Type: 
  Country: None (occurrence: None)
  Receive Date: 20071004
  Receipt Date: 20070927
  Transmission Date: 20080405
  Serious: Yes (Hospitalization)
  Sender: FDA-Public Use
  Company Number: 2007SP019597

PATIENT
  Age: 60 Year
  Sex: Male
  Weight: 99 kg

DRUGS (1)
  1. TEMODAR [Suspect]
     Indication: GLIOBLASTOMA MULTIFORME
     Dosage: 325 MG; PO
     Route: 048
     Dates: start: 20070618, end: 20070624

REACTIONS (4)
  - DIZZINESS [None]
  - HEADACHE [None]
  - SYNCOPE [None]
  - UNEVALUABLE EVENT [None]
